FAERS Safety Report 4579587-4 (Version None)
Quarter: 2005Q1

REPORT INFORMATION
  Report Type: 
  Country: None (occurrence: None)
  Receive Date: 20050210
  Receipt Date: 20050126
  Transmission Date: 20050727
  Serious: Yes (Death, Hospitalization)
  Sender: FDA-Public Use
  Company Number: 2004AL000925

PATIENT
  Age: 41 Year
  Sex: Female

DRUGS (4)
  1. TRAMADOL HCL [Suspect]
     Dosage: PO
     Route: 048
  2. CLONAZEPAM [Suspect]
     Dosage: PO
     Route: 048
  3. ACETAMINOPHEN AND HYDROCODONE BITARTRATE [Suspect]
     Dosage: PO
     Route: 048
  4. NABUMETONE [Suspect]
     Dosage: PO
     Route: 048

REACTIONS (13)
  - BLOOD PRESSURE DECREASED [None]
  - BODY TEMPERATURE DECREASED [None]
  - BODY TEMPERATURE INCREASED [None]
  - CARDIAC ARREST [None]
  - COMPLETED SUICIDE [None]
  - DISSEMINATED INTRAVASCULAR COAGULATION [None]
  - HEART RATE INCREASED [None]
  - HYPERTHERMIA [None]
  - INTENTIONAL MISUSE [None]
  - MULTI-ORGAN FAILURE [None]
  - MYDRIASIS [None]
  - RESPIRATORY ARREST [None]
  - RHABDOMYOLYSIS [None]
